FAERS Safety Report 16654094 (Version 1)
Quarter: 2019Q3

REPORT INFORMATION
  Report Type: Spontaneous
  Country: US (occurrence: US)
  Receive Date: 20190731
  Receipt Date: 20190731
  Transmission Date: 20191004
  Serious: No
  Sender: FDA-Public Use
  Company Number: US-SA-2019SA197025

PATIENT
  Age: 70 Year
  Sex: Female

DRUGS (1)
  1. LANTUS SOLOSTAR [Suspect]
     Active Substance: INSULIN GLARGINE
     Indication: TYPE 2 DIABETES MELLITUS
     Dosage: 20 UNK, ONCE DAILY AT NIGHT
     Route: 065
     Dates: start: 2006

REACTIONS (4)
  - Blood glucose increased [Unknown]
  - Malaise [Unknown]
  - Product dose omission [Unknown]
  - Device operational issue [Unknown]
